FAERS Safety Report 9087805 (Version 1)
Quarter: 2013Q1

REPORT INFORMATION
  Report Type: Report from Study
  Country: US (occurrence: US)
  Receive Date: 20130201
  Receipt Date: 20130201
  Transmission Date: 20140127
  Serious: No
  Sender: FDA-Public Use
  Company Number: US-ABBOTT-12P-163-1021440-00

PATIENT
  Age: 71 Year
  Sex: Female

DRUGS (14)
  1. HUMIRA [Suspect]
     Indication: CROHN^S DISEASE
     Dates: start: 20121114
  2. UNKNOWN MEDICATION [Concomitant]
     Indication: GASTRIC DISORDER
  3. SIMVASTATIN [Concomitant]
     Indication: BLOOD CHOLESTEROL
  4. OGEN [Concomitant]
     Indication: HOT FLUSH
  5. SUMATRIPTAN [Concomitant]
     Indication: MIGRAINE
  6. NEXIUM ER [Concomitant]
     Indication: GASTROOESOPHAGEAL REFLUX DISEASE
  7. MICARDIS [Concomitant]
     Indication: BLOOD PRESSURE
  8. TEMAZEPAM [Concomitant]
     Indication: SLEEP DISORDER THERAPY
     Dosage: 2 TABS AT HOUR OF SLEEP
  9. ALPRAZOLAM [Concomitant]
     Indication: ANXIETY
     Dosage: AS NEEDED
  10. MULTIPLE VITAMINS [Concomitant]
     Indication: PRODUCT USED FOR UNKNOWN INDICATION
     Dosage: 1 DAILY
  11. FISH OIL [Concomitant]
     Indication: PRODUCT USED FOR UNKNOWN INDICATION
  12. CALCIUM [Concomitant]
     Indication: PRODUCT USED FOR UNKNOWN INDICATION
     Dosage: 1 DAILY
  13. VITAMIN D [Concomitant]
     Indication: PRODUCT USED FOR UNKNOWN INDICATION
     Dosage: 1 DAILY
  14. PROMETHAZINE [Concomitant]
     Indication: NAUSEA

REACTIONS (4)
  - Incorrect dose administered [Not Recovered/Not Resolved]
  - Injection site pain [Recovered/Resolved]
  - Injection site pain [Recovered/Resolved]
  - Nausea [Not Recovered/Not Resolved]
